FAERS Safety Report 6171622-5 (Version None)
Quarter: 2009Q2

REPORT INFORMATION
  Report Type: 
  Country: None (occurrence: None)
  Receive Date: 20090428
  Receipt Date: 20090428
  Transmission Date: 20091009
  Serious: Yes (Other)
  Sender: FDA-Public Use
  Company Number: None

PATIENT
  Age: 57 Year
  Sex: Female
  Weight: 58.9676 kg

DRUGS (1)
  1. JANUMET [Suspect]
     Indication: DIABETES MELLITUS
     Dosage: ONE PILL B.I.D. PO
     Route: 048
     Dates: start: 20060101, end: 20090420

REACTIONS (4)
  - DYSSTASIA [None]
  - FOOT DEFORMITY [None]
  - JOINT STIFFNESS [None]
  - MUSCLE SPASMS [None]
